APPROVED DRUG PRODUCT: QUILLIVANT XR
Active Ingredient: METHYLPHENIDATE HYDROCHLORIDE
Strength: 5MG/ML
Dosage Form/Route: FOR SUSPENSION, EXTENDED RELEASE;ORAL
Application: N202100 | Product #001 | TE Code: AB
Applicant: NEXTWAVE PHARMACEUTICALS INC A SUB OF TRIS PHARMA INC
Approved: Sep 27, 2012 | RLD: Yes | RS: Yes | Type: RX

PATENTS:
Patent 8956649 | Expires: Feb 15, 2031
Patent 8563033 | Expires: Feb 15, 2031
Patent 9040083 | Expires: Feb 15, 2031
Patent 8062667 | Expires: Mar 29, 2029
Patent 8287903 | Expires: Feb 15, 2031
Patent 8465765 | Expires: Feb 15, 2031
Patent 8778390 | Expires: Feb 15, 2031